FAERS Safety Report 7763089-8 (Version None)
Quarter: 2011Q3

REPORT INFORMATION
  Report Type: 
  Country: None (occurrence: None)
  Receive Date: 20110920
  Receipt Date: 20101012
  Transmission Date: 20111222
  Serious: No
  Sender: FDA-Public Use
  Company Number: US-BAUSCH-2010BL005839

PATIENT
  Sex: Male

DRUGS (2)
  1. ERYTHROCIN 1% [Suspect]
     Indication: OFF LABEL USE
     Route: 061
     Dates: start: 20101010
  2. ERYTHROCIN 1% [Suspect]
     Indication: BLEPHARITIS
     Route: 061
     Dates: start: 20101010

REACTIONS (2)
  - VISUAL IMPAIRMENT [None]
  - MEDICATION RESIDUE [None]
